FAERS Safety Report 9347171 (Version 1)
Quarter: 2013Q2

REPORT INFORMATION
  Report Type: Spontaneous
  Country: GB (occurrence: GB)
  Receive Date: 20130613
  Receipt Date: 20130613
  Transmission Date: 20140414
  Serious: Yes (Other)
  Sender: FDA-Public Use
  Company Number: GB-ELI_LILLY_AND_COMPANY-GB201306000727

PATIENT
  Sex: Female

DRUGS (1)
  1. FORSTEO [Suspect]
     Dosage: UNK, UNKNOWN
     Route: 065

REACTIONS (9)
  - Bladder cancer [Unknown]
  - Spinal pain [Not Recovered/Not Resolved]
  - Spinal fracture [Unknown]
  - Musculoskeletal chest pain [Unknown]
  - Chest pain [Unknown]
  - Headache [Recovering/Resolving]
  - Dyspepsia [Unknown]
  - Hiatus hernia [Unknown]
  - Epistaxis [Recovered/Resolved]
